FAERS Safety Report 9077396 (Version 3)
Quarter: 2014Q1

REPORT INFORMATION
  Report Type: Report from Study
  Country: NL (occurrence: NL)
  Receive Date: 20130130
  Receipt Date: 20140103
  Transmission Date: 20141002
  Serious: Yes (Death, Other)
  Sender: FDA-Public Use
  Company Number: PHHY2013NL007644

PATIENT
  Sex: Male

DRUGS (4)
  1. ZOMETA [Suspect]
     Indication: PROSTATE CANCER METASTATIC
     Dosage: 4 MG, PER 100 ML; 1 X 28 DAYS
     Route: 042
  2. ZOMETA [Suspect]
     Dosage: 4 MG, PER 100 ML; 1 X 28 DAYS
     Route: 042
     Dates: start: 20120220
  3. ZOMETA [Suspect]
     Dosage: 4 MG, PER 100 ML; 1 X 28 DAYS
     Route: 042
     Dates: start: 20121228
  4. ZOMETA [Suspect]
     Dosage: 4 MG, PER 100 ML; 1 X 28 DAYS
     Route: 042
     Dates: start: 20130124

REACTIONS (4)
  - Prostate cancer metastatic [Fatal]
  - Malignant neoplasm progression [Fatal]
  - Dementia [Unknown]
  - Jaundice [Not Recovered/Not Resolved]
